FAERS Safety Report 4399464-1 (Version None)
Quarter: 2004Q3

REPORT INFORMATION
  Report Type: 
  Country: None (occurrence: None)
  Receive Date: 20040712
  Receipt Date: 20040625
  Transmission Date: 20050211
  Serious: Yes (Other)
  Sender: FDA-Public Use
  Company Number: 2004-BP-05059BP

PATIENT
  Age: 29 Year
  Sex: Female

DRUGS (3)
  1. VIRAMUNE [Suspect]
     Indication: HIV INFECTION
     Dosage: PO
     Route: 048
     Dates: start: 20031015
  2. DIDANOSINE (DIDANOSIDE) [Suspect]
     Indication: HIV INFECTION
     Dates: start: 20031015
  3. ZIDOVUDINE [Suspect]
     Indication: HIV INFECTION
     Dates: start: 20031015

REACTIONS (1)
  - BLOOD AMYLASE INCREASED [None]
